FAERS Safety Report 4680089-5 (Version None)
Quarter: 2005Q2

REPORT INFORMATION
  Report Type: 
  Country: None (occurrence: None)
  Receive Date: 20050531
  Receipt Date: 20050513
  Transmission Date: 20051028
  Serious: Yes (Other)
  Sender: FDA-Public Use
  Company Number: DSA_26436_2005

PATIENT
  Age: 65 Year
  Sex: Male

DRUGS (1)
  1. DILTIAZEM [Suspect]
     Dosage: DF

REACTIONS (4)
  - CONDITION AGGRAVATED [None]
  - DRY MOUTH [None]
  - EATON-LAMBERT SYNDROME [None]
  - NEUROLOGICAL SYMPTOM [None]
